FAERS Safety Report 19507168 (Version 1)
Quarter: 2021Q3

REPORT INFORMATION
  Report Type: Report from Study
  Country: US (occurrence: US)
  Receive Date: 20210708
  Receipt Date: 20210708
  Transmission Date: 20211014
  Serious: Yes (Other)
  Sender: FDA-Public Use
  Company Number: US-MYLANLABS-2021M1039520

PATIENT
  Age: 42 Year
  Sex: Female

DRUGS (8)
  1. FOSCARNET [Concomitant]
     Active Substance: FOSCARNET
     Indication: IRIDOCYCLITIS
  2. VALGANCICLOVIR. [Suspect]
     Active Substance: VALGANCICLOVIR
     Indication: VIRAL UVEITIS
     Dosage: 900 MILLIGRAM, BID
     Route: 065
  3. FOSCARNET [Concomitant]
     Active Substance: FOSCARNET
     Indication: CYTOMEGALOVIRUS INFECTION
  4. AZOPT [Concomitant]
     Active Substance: BRINZOLAMIDE
     Indication: VIRAL UVEITIS
     Dosage: UNK UNK, TID
     Route: 047
  5. VALGANCICLOVIR. [Suspect]
     Active Substance: VALGANCICLOVIR
     Indication: CYTOMEGALOVIRUS INFECTION
  6. VALGANCICLOVIR. [Suspect]
     Active Substance: VALGANCICLOVIR
     Indication: IRIDOCYCLITIS
  7. FOSCARNET [Concomitant]
     Active Substance: FOSCARNET
     Indication: VIRAL UVEITIS
     Dosage: INTRAVITREAL INJECTION 2.4MG/0.1CC
  8. AZOPT [Concomitant]
     Active Substance: BRINZOLAMIDE
     Indication: IRIDOCYCLITIS

REACTIONS (1)
  - Drug ineffective [Unknown]
